FAERS Safety Report 24072570 (Version 1)
Quarter: 2024Q3

REPORT INFORMATION
  Report Type: Spontaneous
  Country: GB (occurrence: GB)
  Receive Date: 20240710
  Receipt Date: 20240710
  Transmission Date: 20241016
  Serious: Yes (Other)
  Sender: ABBVIE
  Company Number: None

PATIENT
  Age: 38 Year
  Sex: Male
  Weight: 70 kg

DRUGS (1)
  1. OFLOXACIN [Suspect]
     Active Substance: OFLOXACIN
     Indication: Product used for unknown indication
     Route: 065

REACTIONS (2)
  - Headache [Not Recovered/Not Resolved]
  - Insomnia [Not Recovered/Not Resolved]

NARRATIVE: CASE EVENT DATE: 20240407
